FAERS Safety Report 14930759 (Version 1)
Quarter: 2018Q2

REPORT INFORMATION
  Report Type: Spontaneous
  Country: FR (occurrence: FR)
  Receive Date: 20180523
  Receipt Date: 20180523
  Transmission Date: 20180711
  Serious: Yes (Other)
  Sender: FDA-Public Use
  Company Number: FR-MERCK KGAA-2048344

PATIENT
  Age: 70 Year
  Sex: Female

DRUGS (1)
  1. NOVOTHYROX [Suspect]
     Active Substance: LEVOTHYROXINE SODIUM
     Indication: PRODUCT USED FOR UNKNOWN INDICATION
     Dates: end: 20170903

REACTIONS (22)
  - Tendonitis [Not Recovered/Not Resolved]
  - Impaired driving ability [Recovered/Resolved]
  - Neoplasm [Recovering/Resolving]
  - Fatigue [Recovering/Resolving]
  - Social avoidant behaviour [Recovering/Resolving]
  - Anti-thyroid antibody positive [None]
  - Visual field defect [Recovering/Resolving]
  - Fear of falling [Recovering/Resolving]
  - Nausea [Recovering/Resolving]
  - Urinary tract infection [Recovering/Resolving]
  - Malaise [Recovering/Resolving]
  - Depression [Recovering/Resolving]
  - Visual impairment [Recovering/Resolving]
  - Hyperhidrosis [Recovering/Resolving]
  - Vertigo [Recovered/Resolved]
  - Balance disorder [Recovered/Resolved]
  - Loss of personal independence in daily activities [Recovering/Resolving]
  - Onychoclasis [Recovering/Resolving]
  - Asthenia [Recovering/Resolving]
  - Alopecia [Recovering/Resolving]
  - Genital infection [Recovering/Resolving]
  - Headache [Recovering/Resolving]

NARRATIVE: CASE EVENT DATE: 201704
